FAERS Safety Report 16775644 (Version 1)
Quarter: 2019Q4

REPORT INFORMATION
  Report Type: Spontaneous
  Country: US (occurrence: US)
  Receive Date: 20190905
  Receipt Date: 20190905
  Transmission Date: 20200122
  Serious: Yes (Life-Threatening, Hospitalization, Disabling, Other)
  Sender: FDA-Public Use
  Company Number: None

PATIENT
  Age: 59 Year
  Sex: Female
  Weight: 72.45 kg

DRUGS (1)
  1. LORAZAPAM [Suspect]
     Active Substance: LORAZEPAM
     Indication: POST-TRAUMATIC STRESS DISORDER
     Dates: start: 20140129, end: 20190601

REACTIONS (2)
  - Pain [None]
  - Asthenia [None]

NARRATIVE: CASE EVENT DATE: 20190129
